FAERS Safety Report 18423752 (Version 3)
Quarter: 2020Q4

REPORT INFORMATION
  Report Type: Report from Study
  Country: US (occurrence: US)
  Receive Date: 20201024
  Receipt Date: 20201204
  Transmission Date: 20210114
  Serious: Yes (Hospitalization, Disabling)
  Sender: FDA-Public Use
  Company Number: NVSC2020US282115

PATIENT
  Age: 40 Year
  Sex: Male

DRUGS (2)
  1. ADAKVEO [Suspect]
     Active Substance: CRIZANLIZUMAB-TMCA
     Indication: SICKLE CELL DISEASE
     Dosage: UNK
     Route: 042
     Dates: start: 20200914, end: 20200928
  2. ADAKVEO [Suspect]
     Active Substance: CRIZANLIZUMAB-TMCA
     Dosage: UNK
     Route: 042
     Dates: start: 20200928, end: 20201026

REACTIONS (3)
  - Chest pain [Not Recovered/Not Resolved]
  - Gastric disorder [Not Recovered/Not Resolved]
  - Arthralgia [Not Recovered/Not Resolved]

NARRATIVE: CASE EVENT DATE: 20201016
